FAERS Safety Report 9439741 (Version 3)
Quarter: 2013Q3

REPORT INFORMATION
  Report Type: Spontaneous
  Country: JP (occurrence: JP)
  Receive Date: 20130805
  Receipt Date: 20130906
  Transmission Date: 20140515
  Serious: Yes (Other)
  Sender: FDA-Public Use
  Company Number: JP-009507513-1307JPN015428

PATIENT
  Sex: Male

DRUGS (3)
  1. ZETIA TABLETS 10MG [Suspect]
     Indication: HYPERCHOLESTEROLAEMIA
     Dosage: 10 MG, QD
     Route: 048
     Dates: start: 2012
  2. ZETIA TABLETS 10MG [Suspect]
     Dosage: 10 MG, QD
     Route: 048
  3. CRESTOR [Concomitant]
     Dosage: DAILY DOSAGE UNKNOWN
     Route: 048

REACTIONS (3)
  - Cerebral infarction [Unknown]
  - Blood creatine phosphokinase increased [Recovered/Resolved]
  - Blood creatine phosphokinase increased [Unknown]
